FAERS Safety Report 10428701 (Version 1)
Quarter: 2014Q3

REPORT INFORMATION
  Report Type: Spontaneous
  Country: CA (occurrence: None)
  Receive Date: 20140902
  Receipt Date: 20140902
  Transmission Date: 20150326
  Serious: Yes (Hospitalization)
  Sender: FDA-Public Use
  Company Number: 2014CVI00026

PATIENT
  Age: 26 Year
  Sex: Female

DRUGS (8)
  1. MATERNAL VITAMINS [Concomitant]
     Active Substance: VITAMINS
  2. ZANTAC [Suspect]
     Active Substance: RANITIDINE HYDROCHLORIDE
  3. VALACICLOVIR HYDROCHLORIDE [Suspect]
     Active Substance: VALACYCLOVIR HYDROCHLORIDE
     Dosage: 500MG, 1X DAY.
  4. FOLIC ACID. [Concomitant]
     Active Substance: FOLIC ACID
  5. INFLIXIMAB [Suspect]
     Active Substance: INFLIXIMAB
     Route: 042
  6. DICYCLOMINE HCL [Suspect]
     Active Substance: DICYCLOMINE HYDROCHLORIDE
  7. DIPHENHYDRAMINE [Suspect]
     Active Substance: DIPHENHYDRAMINE
     Route: 048
  8. MESALAZINE [Suspect]
     Active Substance: MESALAMINE

REACTIONS (2)
  - Abortion spontaneous [None]
  - Exposure during pregnancy [None]
